FAERS Safety Report 8406695-X (Version None)
Quarter: 2012Q2

REPORT INFORMATION
  Report Type: 
  Country: None (occurrence: None)
  Receive Date: 20120604
  Receipt Date: 20120529
  Transmission Date: 20120825
  Serious: Yes (Death)
  Sender: FDA-Public Use
  Company Number: US-ASTELLAS-2012US003320

PATIENT
  Sex: Male

DRUGS (7)
  1. AVASTIN [Suspect]
     Indication: COLON CANCER
     Dosage: UNK
     Route: 065
  2. XELODA [Suspect]
     Indication: RECTAL CANCER
  3. XELODA [Suspect]
     Indication: COLON CANCER
     Dosage: UNK
     Route: 065
  4. AVASTIN [Suspect]
     Indication: RECTAL CANCER
  5. OXALIPLATIN [Suspect]
     Indication: COLON CANCER
     Dosage: UNK
     Route: 065
  6. TARCEVA [Suspect]
     Indication: PRODUCT USED FOR UNKNOWN INDICATION
     Dosage: UNK
     Route: 048
  7. OXALIPLATIN [Suspect]
     Indication: RECTAL CANCER

REACTIONS (1)
  - DISEASE PROGRESSION [None]
